FAERS Safety Report 10211185 (Version 1)
Quarter: 2014Q2

REPORT INFORMATION
  Report Type: Spontaneous
  Country: US (occurrence: None)
  Receive Date: 20140530
  Receipt Date: 20140530
  Transmission Date: 20141212
  Serious: Yes (Other)
  Sender: FDA-Public Use
  Company Number: None

PATIENT
  Age: 39 Year
  Sex: Female
  Weight: 158.76 kg

DRUGS (3)
  1. TRAMADOL [Suspect]
     Indication: PAIN
     Dosage: 1 PILL FOUR TIMES DAILY TAKEN BY MOUTH
     Route: 048
     Dates: start: 20140401, end: 20140528
  2. TRAMADOL [Suspect]
     Indication: BACK PAIN
     Dosage: 1 PILL FOUR TIMES DAILY TAKEN BY MOUTH
     Route: 048
     Dates: start: 20140401, end: 20140528
  3. TRAMADOL [Suspect]
     Indication: ARTHRALGIA
     Dosage: 1 PILL FOUR TIMES DAILY TAKEN BY MOUTH
     Route: 048
     Dates: start: 20140401, end: 20140528

REACTIONS (1)
  - Alopecia [None]
